FAERS Safety Report 7383106-7 (Version None)
Quarter: 2011Q1

REPORT INFORMATION
  Report Type: 
  Country: None (occurrence: None)
  Receive Date: 20110330
  Receipt Date: 20110322
  Transmission Date: 20110831
  Serious: Yes (Hospitalization, Other)
  Sender: FDA-Public Use
  Company Number: US-ASTELLAS-2011US000912

PATIENT
  Sex: Male

DRUGS (3)
  1. PROGRAF [Suspect]
     Dosage: 1.5 MG AM, 2 MG PM
     Route: 048
  2. CELLCEPT [Concomitant]
     Indication: PRODUCT USED FOR UNKNOWN INDICATION
     Dosage: UNK
     Route: 065
  3. PROGRAF [Suspect]
     Indication: HEART TRANSPLANT
     Dosage: 3 MG BID, 0.5 MG UID/QD
     Route: 048
     Dates: start: 20110207

REACTIONS (7)
  - ATRIAL FLUTTER [None]
  - ANTIBODY TEST POSITIVE [None]
  - LEUKOCYTOSIS [None]
  - PNEUMONIA RESPIRATORY SYNCYTIAL VIRAL [None]
  - DIABETES MELLITUS [None]
  - OEDEMA PERIPHERAL [None]
  - WAIST CIRCUMFERENCE INCREASED [None]
